FAERS Safety Report 4784825-9 (Version None)
Quarter: 2005Q3

REPORT INFORMATION
  Report Type: 
  Country: None (occurrence: None)
  Receive Date: 20050929
  Receipt Date: 20050929
  Transmission Date: 20060218
  Serious: Yes (Life-Threatening, Hospitalization)
  Sender: FDA-Public Use
  Company Number: None

PATIENT
  Age: 64 Year
  Sex: Female
  Weight: 64 kg

DRUGS (12)
  1. LEVAQUIN [Suspect]
     Indication: URINARY TRACT INFECTION
     Dosage: 500 MG Q 24 HRS IV
     Route: 042
     Dates: start: 20050909, end: 20050910
  2. METRONIDAZOLE [Suspect]
     Indication: CLOSTRIDIAL INFECTION
     Dosage: 500 MG Q 8 HRS IV  2 DOSES ON 09/09, 1 DOSE ON 9/10/05
     Route: 042
     Dates: start: 20050909, end: 20050910
  3. BACITRICIN [Concomitant]
  4. CHOLESTYROMINE [Concomitant]
  5. MESALAMINE [Concomitant]
  6. CETRIZINE [Concomitant]
  7. FAMOTIDINE [Concomitant]
  8. LEXAPRO [Concomitant]
  9. HYDROCORTISONE [Concomitant]
  10. MEPERIDINE HCL [Concomitant]
  11. PANTIPRAZOLE [Concomitant]
  12. FENTANYL [Concomitant]

REACTIONS (3)
  - CLOSTRIDIAL INFECTION [None]
  - TOXIC EPIDERMAL NECROLYSIS [None]
  - URINARY TRACT INFECTION [None]
